FAERS Safety Report 23580244 (Version 1)
Quarter: 2024Q1

REPORT INFORMATION
  Report Type: Spontaneous
  Country: JP (occurrence: JP)
  Receive Date: 20240229
  Receipt Date: 20240229
  Transmission Date: 20240409
  Serious: Yes (Other)
  Sender: FDA-Public Use
  Company Number: JP-NEBO-PC013009

PATIENT
  Age: 37 Year
  Sex: Female
  Weight: 60 kg

DRUGS (12)
  1. FERRIC DERISOMALTOSE [Suspect]
     Active Substance: FERRIC DERISOMALTOSE
     Indication: Iron deficiency anaemia
     Route: 050
     Dates: start: 20231218, end: 20231218
  2. BICANATE [Concomitant]
     Active Substance: CALCIUM CHLORIDE\MAGNESIUM CHLORIDE\POTASSIUM CHLORIDE\SODIUM BICARBONATE\SODIUM CHLORIDE\TRISODIUM
     Indication: Product used for unknown indication
     Route: 050
     Dates: start: 20231218
  3. VEEN D [Concomitant]
     Active Substance: CALCIUM CHLORIDE\DEXTROSE\POTASSIUM CHLORIDE\SODIUM ACETATE\SODIUM CHLORIDE
     Indication: Product used for unknown indication
     Dates: start: 20231218
  4. PARTAN M [Concomitant]
     Indication: Product used for unknown indication
     Dates: start: 20231218
  5. FRESH FROZEN PLASMA [Concomitant]
     Active Substance: HUMAN PLASMA
     Indication: Product used for unknown indication
     Route: 050
     Dates: start: 20231218
  6. ACETAMINOPHEN [Suspect]
     Active Substance: ACETAMINOPHEN
     Indication: Abdominal pain
     Dates: start: 20231218
  7. PENTAZOCINE [Concomitant]
     Active Substance: PENTAZOCINE
     Indication: Product used for unknown indication
     Dates: start: 20231218
  8. CEFMETAZOLE [Concomitant]
     Active Substance: CEFMETAZOLE
     Indication: Product used for unknown indication
     Route: 050
     Dates: start: 20231218, end: 20231218
  9. DINOPROST [Suspect]
     Active Substance: DINOPROST
     Indication: Product used for unknown indication
     Route: 050
     Dates: start: 20231218
  10. AMPICILLIN SODIUM [Concomitant]
     Active Substance: AMPICILLIN SODIUM
     Indication: Product used for unknown indication
     Route: 050
     Dates: start: 20231218, end: 20231220
  11. CARBAZOCHROME SODIUM SULFONATE [Concomitant]
     Active Substance: CARBAZOCHROME SODIUM SULFONATE
     Indication: Product used for unknown indication
     Route: 050
     Dates: start: 20231218, end: 20231218
  12. TRANEXAMIC ACID [Concomitant]
     Active Substance: TRANEXAMIC ACID
     Indication: Product used for unknown indication
     Route: 050
     Dates: start: 20231218, end: 20231218

REACTIONS (7)
  - Ventricular extrasystoles [Recovered/Resolved]
  - Tachycardia [Recovered/Resolved]
  - Chest pain [Unknown]
  - Oropharyngeal discomfort [Recovering/Resolving]
  - Chest discomfort [Unknown]
  - Tremor [Recovering/Resolving]
  - Chills [Unknown]

NARRATIVE: CASE EVENT DATE: 20231218
